FAERS Safety Report 9891575 (Version 1)
Quarter: 2014Q1

REPORT INFORMATION
  Report Type: Spontaneous
  Country: US (occurrence: None)
  Receive Date: 20140212
  Receipt Date: 20140212
  Transmission Date: 20141002
  Serious: Yes (Other)
  Sender: FDA-Public Use
  Company Number: None

PATIENT
  Sex: Female

DRUGS (1)
  1. METHYLCOBALAMIN [Suspect]
     Dosage: 6 UNIT PER SHOT?1500 MC
     Dates: start: 20130730, end: 20131015

REACTIONS (3)
  - Hepatic enzyme increased [None]
  - Product compounding quality issue [None]
  - Yellow skin [None]
